FAERS Safety Report 22032470 (Version 1)
Quarter: 2023Q1

REPORT INFORMATION
  Report Type: Spontaneous
  Country: SE (occurrence: SE)
  Receive Date: 20230224
  Receipt Date: 20230224
  Transmission Date: 20230418
  Serious: Yes (Other)
  Sender: FDA-Public Use
  Company Number: None

PATIENT
  Age: 52 Year
  Sex: Male

DRUGS (33)
  1. DULOXETINE HYDROCHLORIDE [Suspect]
     Active Substance: DULOXETINE HYDROCHLORIDE
     Indication: Generalised anxiety disorder
     Route: 065
     Dates: start: 20210824, end: 20211104
  2. PROPIOMAZINE [Concomitant]
     Active Substance: PROPIOMAZINE
     Indication: Product used for unknown indication
     Dosage: 25 MG AS NEEDED
     Route: 065
  3. BECLOMETHASONE DIPROPIONATE\FORMOTEROL FUMARATE\GLYCOPYRROLATE [Concomitant]
     Active Substance: BECLOMETHASONE DIPROPIONATE\FORMOTEROL FUMARATE\GLYCOPYRROLATE
     Indication: Product used for unknown indication
     Dosage: 87 MICROGRAMS/5 MICROGRAMS/9 MICROGRAMS 2 INHALATIONS X 3
     Route: 065
     Dates: start: 20200923
  4. BETNOVAT MED CHINOFORM [Concomitant]
     Indication: Product used for unknown indication
     Dosage: 1 APPLICATION X 2
     Route: 065
     Dates: start: 20210721
  5. Alvedon forte (former name ALVEDON) [Concomitant]
     Indication: Product used for unknown indication
     Dosage: 1 G 1 TABLET X 3 - 4
     Route: 065
     Dates: start: 20200407
  6. FENTANYL [Concomitant]
     Active Substance: FENTANYL
     Indication: Product used for unknown indication
     Dosage: 25 MICROGRAMS/HOUR ACCORDING TO SPECIAL PRESCRIPTION
     Route: 065
     Dates: start: 20210603
  7. FENTANYL [Concomitant]
     Active Substance: FENTANYL
     Dosage: 12 MICROGRAMS/HOUR ACCORDING TO SPECIAL PRESCRIPTION
     Route: 065
     Dates: start: 20210603
  8. LOCOBASE LPL [Concomitant]
     Indication: Product used for unknown indication
     Dosage: 200 MG/G+45 MG/G ACCORDING TO SPECIAL PRESCRIPTION
     Route: 065
     Dates: start: 20190902
  9. OXAZEPAM [Concomitant]
     Active Substance: OXAZEPAM
     Indication: Product used for unknown indication
     Dosage: 15 MG AS NEEDED
     Route: 065
  10. EZETIMIBE [Concomitant]
     Active Substance: EZETIMIBE
     Indication: Product used for unknown indication
     Dosage: 10 MG 1 TABLET X 1
     Route: 065
     Dates: start: 20171031
  11. SODIUM PICOSULFATE [Concomitant]
     Active Substance: SODIUM PICOSULFATE
     Indication: Product used for unknown indication
     Dosage: 7.5 MG/ML AS NEEDED
     Route: 065
  12. Dimethikon Meda (former name Dimethikon Recip) [Concomitant]
     Indication: Product used for unknown indication
     Dosage: 200 MG AS NEEDED
     Route: 065
  13. NITROLINGUAL [Concomitant]
     Active Substance: NITROGLYCERIN
     Indication: Product used for unknown indication
     Dosage: 0.4 MG/DOSE AS NEEDED
     Route: 065
  14. Novalucol (former name NOVALUCOL NOVUM) [Concomitant]
     Indication: Product used for unknown indication
     Dosage: IF NECESSARY
     Route: 065
  15. APIDRA SOLOSTAR [Concomitant]
     Active Substance: INSULIN GLULISINE
     Indication: Product used for unknown indication
     Dosage: 100 UNITS/ML IF NEEDED
     Route: 065
  16. CALCITUGG [Concomitant]
     Indication: Product used for unknown indication
     Dosage: 1000 MILLIGRAM DAILY; 500 MG 1 CHEWABLE TABLET AT 8 O^CLOCK + 1 CHEWABLE TABLET AT 12 O^CLOCK
     Route: 065
     Dates: start: 20210209
  17. INNOHEP [Concomitant]
     Active Substance: TINZAPARIN SODIUM
     Indication: Product used for unknown indication
     Dosage: 10000 IU (INTERNATIONAL UNIT) DAILY; 10,000 ANTI-XA IU 1 PREFILLED SYRINGE AT 8 P.M
     Route: 065
     Dates: start: 20200923
  18. INNOHEP [Concomitant]
     Active Substance: TINZAPARIN SODIUM
     Dosage: 10,000 ANTI-XA IU/ML ACCORDING TO SPECIAL PRESCRIPTION
     Route: 065
     Dates: start: 20200428
  19. Acetylcysteine ??Meda (former name Acetylcysteine ??BioPhausia) [Concomitant]
     Indication: Product used for unknown indication
     Dosage: 200 MG/ML AS NEEDED
     Route: 065
  20. RETACRIT [Concomitant]
     Active Substance: EPOETIN ALFA-EPBX
     Indication: Product used for unknown indication
     Dosage: 8000 IU/0.8 ML ACCORDING TO SPECIAL PRESCRIPTION
     Route: 065
     Dates: start: 20210811
  21. TOPIRAMATE [Concomitant]
     Active Substance: TOPIRAMATE
     Indication: Product used for unknown indication
     Dosage: 50 MILLIGRAM DAILY; 25 MG 2 TABLETS AT 20:00.
     Route: 065
     Dates: start: 20171031
  22. Isosorbide mononitrate Mylan (former name Isosorbide mononitrate Merck [Concomitant]
     Indication: Product used for unknown indication
     Dosage: 60 MG 1 X 1
     Route: 065
     Dates: start: 20191108
  23. ATORVASTATIN [Concomitant]
     Active Substance: ATORVASTATIN
     Indication: Product used for unknown indication
     Dosage: 40 MILLIGRAM DAILY; 40 MG 1 TABLET AT 20:00
     Route: 065
     Dates: start: 20171030
  24. CAVERJECT [Concomitant]
     Active Substance: ALPROSTADIL
     Indication: Product used for unknown indication
     Dosage: 10 MICROGRAMS IF NECESSARY
     Route: 065
  25. Loperamide Mylan (former name Loperamide Scand Pharm) [Concomitant]
     Indication: Product used for unknown indication
     Dosage: 2 MG AS NEEDED
     Route: 065
  26. HUMALOG KWIKPEN [Concomitant]
     Active Substance: INSULIN LISPRO
     Indication: Product used for unknown indication
     Dosage: IF NECESSARY
     Route: 065
  27. DEXAMETHASONE SODIUM PHOSPHATE [Concomitant]
     Active Substance: DEXAMETHASONE SODIUM PHOSPHATE
     Indication: Product used for unknown indication
     Dosage: 1 MG/ML 1 DROP X 1
     Route: 065
     Dates: start: 20200505
  28. VENOFER [Concomitant]
     Active Substance: IRON SUCROSE
     Indication: Product used for unknown indication
     Dosage: 20 MG/ML ACCORDING TO SPECIAL PRESCRIPTION
     Route: 065
     Dates: start: 20200514
  29. ZOPICLONE [Concomitant]
     Active Substance: ZOPICLONE
     Indication: Product used for unknown indication
     Dosage: 7.5 MG AS NEEDED
     Route: 065
  30. Omeprazole Pensa (former name Omecat) [Concomitant]
     Indication: Product used for unknown indication
     Dosage: 20 MG 2 CAPSULES X 1
     Route: 065
     Dates: start: 20210603
  31. Gabapentin Rivopharm (former name Gabapentin Teva) [Concomitant]
     Indication: Product used for unknown indication
     Dosage: 100 MG 2 CAPSULES X 3
     Route: 065
     Dates: start: 20171030
  32. FOLSYRA EVOLAN [Concomitant]
     Indication: Product used for unknown indication
     Dosage: 5 MG 1 TABLET X 1
     Route: 065
     Dates: start: 20181211
  33. Morfin Alternova (former name Morfin E Consult) [Concomitant]
     Indication: Product used for unknown indication
     Dosage: 10 MG AS NEEDED
     Route: 065

REACTIONS (1)
  - Hallucination, visual [Unknown]

NARRATIVE: CASE EVENT DATE: 20210701
